FAERS Safety Report 20624368 (Version 5)
Quarter: 2022Q2

REPORT INFORMATION
  Report Type: Spontaneous
  Country: BR (occurrence: BR)
  Receive Date: 20220322
  Receipt Date: 20220510
  Transmission Date: 20220721
  Serious: Yes (Disabling, Other)
  Sender: FDA-Public Use
  Company Number: BR-SA-SAC20220317001381

PATIENT
  Age: 78 Year
  Sex: Female
  Weight: 92 kg

DRUGS (10)
  1. LANTUS [Suspect]
     Active Substance: INSULIN GLARGINE
     Dosage: AT NIGHT SHE APPLIED 30IU, BID
     Dates: start: 202201
  2. LANTUS [Suspect]
     Active Substance: INSULIN GLARGINE
     Dosage: 60 IU, QD
     Dates: start: 2022
  3. VECASTEN [MELILOTUS OFFICINALIS EXTRACT] [Concomitant]
     Dosage: UNK
  4. OMEPRAZOLE [Concomitant]
     Active Substance: OMEPRAZOLE
     Dosage: UNK
  5. PURAN [Concomitant]
     Active Substance: LEVOTHYROXINE SODIUM
     Dosage: UNK
  6. BUTYLSCOPOLAMINE BROMIDE [Concomitant]
     Active Substance: BUTYLSCOPOLAMINE BROMIDE
     Dosage: UNK
  7. DIAZEPAM [Concomitant]
     Active Substance: DIAZEPAM
     Dosage: UNK
  8. ATENOLOL [Concomitant]
     Active Substance: ATENOLOL
     Dosage: UNK
  9. EPOCLER [Concomitant]
     Dosage: UNK
  10. LUFTAL [SIMETICONE] [Concomitant]
     Dosage: UNK

REACTIONS (15)
  - Diplegia [Not Recovered/Not Resolved]
  - Erythema [Recovering/Resolving]
  - Dry mouth [Not Recovered/Not Resolved]
  - Nausea [Not Recovered/Not Resolved]
  - Tremor [Not Recovered/Not Resolved]
  - Bedridden [Not Recovered/Not Resolved]
  - Diarrhoea [Not Recovered/Not Resolved]
  - Vulvovaginal pruritus [Not Recovered/Not Resolved]
  - Weight increased [Not Recovered/Not Resolved]
  - Erythema [Not Recovered/Not Resolved]
  - Pruritus [Not Recovered/Not Resolved]
  - Injection site pain [Unknown]
  - Product physical consistency issue [Unknown]
  - Drug ineffective [Unknown]
  - Inappropriate schedule of product administration [Unknown]

NARRATIVE: CASE EVENT DATE: 20220101
